FAERS Safety Report 22697567 (Version 2)
Quarter: 2023Q4

REPORT INFORMATION
  Report Type: Report from Study
  Country: ES (occurrence: ES)
  Receive Date: 20230712
  Receipt Date: 20231004
  Transmission Date: 20240109
  Serious: Yes (Hospitalization)
  Sender: FDA-Public Use
  Company Number: None

PATIENT
  Age: 92 Year
  Sex: Female

DRUGS (6)
  1. TORSEMIDE [Suspect]
     Active Substance: TORSEMIDE
     Indication: Hypertension
     Dosage: 5 MILLIGRAM, QD
     Route: 048
     Dates: start: 201805, end: 20230116
  2. SERTRALINE [Suspect]
     Active Substance: SERTRALINE HYDROCHLORIDE
     Indication: Essential tremor
     Dosage: 50 MILLIGRAM, QD
     Route: 048
     Dates: start: 202201, end: 20230116
  3. GABAPENTIN [Suspect]
     Active Substance: GABAPENTIN
     Indication: Essential tremor
     Dosage: 300 MILLIGRAM, QD
     Route: 048
     Dates: start: 201501, end: 20230116
  4. AMLODIPINE [Suspect]
     Active Substance: AMLODIPINE BESYLATE
     Indication: Hypertension
     Dosage: 5 MILLIGRAM, QD
     Route: 048
     Dates: start: 201512, end: 20230116
  5. ASPIRIN [Suspect]
     Active Substance: ASPIRIN
     Indication: Thrombosis prophylaxis
     Dosage: 100 MILLIGRAM, QD
     Route: 048
     Dates: start: 201510, end: 20230116
  6. IMIDAPRIL [Suspect]
     Active Substance: IMIDAPRIL
     Indication: Hypertension
     Dosage: 20 MILLIGRAM, QD
     Route: 048
     Dates: start: 201311, end: 20230116

REACTIONS (1)
  - Pancreatitis acute [Recovered/Resolved]

NARRATIVE: CASE EVENT DATE: 20230115
